FAERS Safety Report 16321039 (Version 1)
Quarter: 2019Q2

REPORT INFORMATION
  Report Type: Spontaneous
  Country: CN (occurrence: CN)
  Receive Date: 20190516
  Receipt Date: 20190516
  Transmission Date: 20190711
  Serious: Yes (Other)
  Sender: FDA-Public Use
  Company Number: CN-JNJFOC-20190518324

PATIENT
  Age: 75 Year
  Sex: Male

DRUGS (1)
  1. XARELTO [Suspect]
     Active Substance: RIVAROXABAN
     Indication: VENOUS THROMBOSIS LIMB
     Route: 048

REACTIONS (5)
  - Incorrect product administration duration [Unknown]
  - Product prescribing issue [Unknown]
  - Neoplasm [Unknown]
  - White blood cell count decreased [Unknown]
  - Platelet count decreased [Unknown]
